FAERS Safety Report 24888323 (Version 2)
Quarter: 2025Q1

REPORT INFORMATION
  Report Type: Spontaneous
  Country: US (occurrence: US)
  Receive Date: 20250127
  Receipt Date: 20250205
  Transmission Date: 20250409
  Serious: No
  Sender: AMGEN
  Company Number: US-AMGEN-USASP2025013351

PATIENT
  Age: 80 Year
  Sex: Female

DRUGS (1)
  1. REPATHA [Suspect]
     Active Substance: EVOLOCUMAB
     Indication: Blood cholesterol abnormal
     Dosage: 140 MILLIGRAM, Q2WK, ( ROUTE OF ADMINISTRATION: LEG)
     Route: 065

REACTIONS (6)
  - Injection site haemorrhage [Unknown]
  - Device difficult to use [Unknown]
  - Injection site pain [Unknown]
  - Accidental exposure to product [Unknown]
  - Incorrect disposal of product [Unknown]
  - Drug dose omission by device [Unknown]

NARRATIVE: CASE EVENT DATE: 20250119
